FAERS Safety Report 8785176 (Version 3)
Quarter: 2013Q3

REPORT INFORMATION
  Report Type: Spontaneous
  Country: US (occurrence: US)
  Receive Date: 20120914
  Receipt Date: 20130711
  Transmission Date: 20140515
  Serious: No
  Sender: FDA-Public Use
  Company Number: US-ASTRAZENECA-2012SE64690

PATIENT
  Age: 16966 Day
  Sex: Female
  Weight: 99.8 kg

DRUGS (22)
  1. SEROQUEL [Suspect]
     Indication: MAJOR DEPRESSION
     Route: 048
     Dates: start: 2010, end: 2012
  2. SEROQUEL [Suspect]
     Indication: DEPRESSION
     Route: 048
     Dates: start: 2010, end: 2012
  3. SEROQUEL [Suspect]
     Indication: INSOMNIA
     Route: 048
     Dates: start: 2010, end: 2012
  4. SEROQUEL [Suspect]
     Indication: MAJOR DEPRESSION
     Dosage: GENERIC, 300 MG AT NIGHT
     Route: 048
     Dates: start: 2012
  5. SEROQUEL [Suspect]
     Indication: DEPRESSION
     Dosage: GENERIC, 300 MG AT NIGHT
     Route: 048
     Dates: start: 2012
  6. SEROQUEL [Suspect]
     Indication: INSOMNIA
     Dosage: GENERIC, 300 MG AT NIGHT
     Route: 048
     Dates: start: 2012
  7. SEROQUEL [Suspect]
     Indication: MAJOR DEPRESSION
     Route: 048
  8. SEROQUEL [Suspect]
     Indication: DEPRESSION
     Route: 048
  9. SEROQUEL [Suspect]
     Indication: INSOMNIA
     Route: 048
  10. SEROQUEL [Suspect]
     Indication: MAJOR DEPRESSION
     Route: 048
     Dates: end: 201305
  11. SEROQUEL [Suspect]
     Indication: DEPRESSION
     Route: 048
     Dates: end: 201305
  12. SEROQUEL [Suspect]
     Indication: INSOMNIA
     Route: 048
     Dates: end: 201305
  13. ALBUTEROL [Concomitant]
     Indication: CHRONIC OBSTRUCTIVE PULMONARY DISEASE
  14. PURPLE DISC INHALER [Concomitant]
     Indication: CHRONIC OBSTRUCTIVE PULMONARY DISEASE
  15. DILANTIN [Concomitant]
     Indication: CONVULSION
  16. LIPITOR [Concomitant]
     Indication: BLOOD CHOLESTEROL ABNORMAL
  17. PROZAC [Concomitant]
     Indication: DEPRESSION
  18. KLONOPAN [Concomitant]
     Indication: DEPRESSION
  19. LASIX [Concomitant]
     Indication: POLYURIA
  20. AMITRYPTYLINE [Concomitant]
     Indication: PAIN
  21. AMITRYPTYLINE [Concomitant]
     Indication: SLEEP DISORDER
  22. FLEXORIL [Concomitant]
     Indication: MUSCLE SPASMS

REACTIONS (11)
  - Fall [Recovering/Resolving]
  - Joint injury [Recovering/Resolving]
  - Joint swelling [Unknown]
  - Feeling abnormal [Unknown]
  - Insomnia [Unknown]
  - Nausea [Unknown]
  - Depression [Unknown]
  - Agitation [Unknown]
  - Drug withdrawal syndrome [Unknown]
  - Drug dose omission [Unknown]
  - Off label use [Unknown]
